FAERS Safety Report 8005398-3 (Version None)
Quarter: 2011Q4

REPORT INFORMATION
  Report Type: 
  Country: None (occurrence: None)
  Receive Date: 20111223
  Receipt Date: 20111211
  Transmission Date: 20120403
  Serious: Yes (Other)
  Sender: FDA-Public Use
  Company Number: CO-ROCHE-1007620

PATIENT
  Sex: Female

DRUGS (6)
  1. METHYLPREDNISOLONE [Suspect]
     Indication: LUPUS NEPHRITIS
     Route: 042
  2. PREDNISOLONE [Suspect]
     Indication: LUPUS NEPHRITIS
  3. ACETAMINOPHEN [Concomitant]
  4. DIPHENHYDRAMINE HCL [Concomitant]
  5. CYCLOPHOSPHAMIDE [Concomitant]
     Indication: LUPUS NEPHRITIS
  6. MABTHERA [Suspect]
     Indication: LUPUS NEPHRITIS

REACTIONS (2)
  - BACTERAEMIA [None]
  - NON-HODGKIN'S LYMPHOMA [None]
